FAERS Safety Report 19147554 (Version 4)
Quarter: 2021Q2

REPORT INFORMATION
  Report Type: Spontaneous
  Country: JP (occurrence: JP)
  Receive Date: 20210416
  Receipt Date: 20210505
  Transmission Date: 20210717
  Serious: Yes (Other)
  Sender: FDA-Public Use
  Company Number: JP-SA-2021SA125238

PATIENT
  Age: 75 Year
  Sex: Female

DRUGS (6)
  1. HIRUDOID [Concomitant]
     Active Substance: GLYCOSAMINOGLYCANS
     Indication: ERYTHEMA
     Dosage: UNK, QD
     Dates: start: 20210405, end: 20210411
  2. PREDONINE [PREDNISOLONE ACETATE] [Concomitant]
     Active Substance: PREDNISOLONE ACETATE
     Indication: ERYTHEMA
     Dosage: UNK, QD
     Dates: start: 20210405, end: 20210411
  3. XYZAL [Suspect]
     Active Substance: LEVOCETIRIZINE DIHYDROCHLORIDE
     Indication: PERIORBITAL SWELLING
     Dosage: 5 MG, QD 5 MILLIGRAM, ONCE DAILY (QD)
     Route: 048
     Dates: start: 20210405
  4. XYZAL [Suspect]
     Active Substance: LEVOCETIRIZINE DIHYDROCHLORIDE
     Indication: ERYTHEMA
  5. PREDONINE [PREDNISOLONE ACETATE] [Concomitant]
     Active Substance: PREDNISOLONE ACETATE
     Indication: PERIORBITAL SWELLING
     Dosage: UNK
  6. HIRUDOID [Concomitant]
     Active Substance: GLYCOSAMINOGLYCANS
     Indication: PERIORBITAL SWELLING

REACTIONS (4)
  - Product use in unapproved indication [Unknown]
  - Oesophageal pain [Recovered/Resolved]
  - Foreign body in throat [Recovered/Resolved]
  - Laryngeal discomfort [Unknown]

NARRATIVE: CASE EVENT DATE: 20210406
